FAERS Safety Report 10143661 (Version 1)
Quarter: 2014Q2

REPORT INFORMATION
  Report Type: Spontaneous
  Country: US (occurrence: US)
  Receive Date: 20140430
  Receipt Date: 20140430
  Transmission Date: 20141212
  Serious: No
  Sender: FDA-Public Use
  Company Number: US-PFIZER INC-2014115493

PATIENT
  Sex: Female

DRUGS (4)
  1. NORVASC [Suspect]
     Dosage: UNK
  2. TEKTURNA HCT [Suspect]
     Dosage: UNK
  3. LISINOPRIL HCTZ [Suspect]
     Dosage: UNK
  4. TRIAMTERENE [Suspect]
     Dosage: UNK

REACTIONS (3)
  - Drug intolerance [Unknown]
  - Swelling [Unknown]
  - Nausea [Unknown]
